FAERS Safety Report 10027760 (Version 1)
Quarter: 2014Q1

REPORT INFORMATION
  Report Type: Spontaneous
  Country: NZ (occurrence: NZ)
  Receive Date: 20140321
  Receipt Date: 20140321
  Transmission Date: 20141002
  Serious: Yes (Death)
  Sender: FDA-Public Use
  Company Number: NZ-ELI_LILLY_AND_COMPANY-NZ201403006458

PATIENT
  Age: 90 Year
  Sex: Female

DRUGS (5)
  1. OLANZAPINE [Suspect]
     Indication: ANXIETY
     Dosage: 10 MG, UNK
     Route: 048
  2. OLANZAPINE [Suspect]
     Indication: DEPRESSION
  3. VALPROIC ACID [Concomitant]
     Indication: ACUTE PSYCHOSIS
     Dosage: 600 MG, QD
     Route: 048
  4. HYDROXOCOBALAMIN [Concomitant]
     Indication: VITAMIN D DEFICIENCY
     Dosage: 1 MG, MONTHLY (1/M)
     Route: 030
  5. FUROSEMIDE [Concomitant]
     Indication: CARDIAC FAILURE CONGESTIVE
     Dosage: 20 MG, UNK
     Route: 048

REACTIONS (5)
  - Death [Fatal]
  - Pneumonia [Unknown]
  - Atrial fibrillation [Unknown]
  - Oedema peripheral [Unknown]
  - Somnolence [Unknown]
